FAERS Safety Report 10458164 (Version 1)
Quarter: 2014Q3

REPORT INFORMATION
  Report Type: Report from Study
  Country: IT (occurrence: IT)
  Receive Date: 20140917
  Receipt Date: 20140917
  Transmission Date: 20150326
  Serious: Yes (Other)
  Sender: FDA-Public Use
  Company Number: IT-ROCHE-1463015

PATIENT

DRUGS (2)
  1. CAPECITABINE [Suspect]
     Active Substance: CAPECITABINE
     Dosage: INTERMITTENT CYCLES OF CAPECITABINE 1000 MG/M2 TWICE DAILY UNTIL SURGERY
     Route: 048
  2. CAPECITABINE [Suspect]
     Active Substance: CAPECITABINE
     Indication: RECTAL CANCER
     Dosage: CONCOMITANT TO RADIOTHERAPY
     Route: 048

REACTIONS (1)
  - Necrotising fasciitis [Unknown]
